FAERS Safety Report 10215488 (Version 1)
Quarter: 2014Q2

REPORT INFORMATION
  Report Type: Spontaneous
  Country: US (occurrence: US)
  Receive Date: 20140604
  Receipt Date: 20140604
  Transmission Date: 20141212
  Serious: No
  Sender: FDA-Public Use
  Company Number: US-BIOGENIDEC-2014BI050166

PATIENT
  Sex: Male

DRUGS (1)
  1. AVONEX [Suspect]
     Indication: ACCIDENTAL EXPOSURE TO PRODUCT
     Dates: start: 201405, end: 201405

REACTIONS (2)
  - Injury associated with device [Recovered/Resolved]
  - Accidental exposure to product [Recovered/Resolved]
